FAERS Safety Report 9587703 (Version 1)
Quarter: 2013Q4

REPORT INFORMATION
  Report Type: Spontaneous
  Country: None (occurrence: US)
  Receive Date: 20131003
  Receipt Date: 20131003
  Transmission Date: 20140711
  Serious: No
  Sender: FDA-Public Use
  Company Number: US-COVIDIEN/TYCO HEALTHCARE/MALLINCKRODT-T201203942

PATIENT
  Sex: Male

DRUGS (7)
  1. EXALGO EXTENDED RELEASE [Suspect]
     Indication: HEADACHE
     Dosage: 16 MG, BID
  2. HYDROMORPHONE HYDROCHLORIDE [Concomitant]
     Indication: BREAKTHROUGH PAIN
     Dosage: UNK
  3. MORPHINE SULFATE [Concomitant]
     Indication: BREAKTHROUGH PAIN
  4. SANDOSTATIN [Concomitant]
  5. SYNTHROID [Concomitant]
  6. HYDROCORTISONE [Concomitant]
  7. TESTOSTERONE [Concomitant]

REACTIONS (2)
  - Pain [Unknown]
  - Drug ineffective [Unknown]
